FAERS Safety Report 19479636 (Version 1)
Quarter: 2021Q2

REPORT INFORMATION
  Report Type: Report from Study
  Country: US (occurrence: US)
  Receive Date: 20210630
  Receipt Date: 20210630
  Transmission Date: 20210717
  Serious: Yes (Other)
  Sender: FDA-Public Use
  Company Number: US-TAKEDA-2021TUS025417

PATIENT
  Sex: Female
  Weight: 81.63 kg

DRUGS (23)
  1. CYANOCOBALAMIN. [Concomitant]
     Active Substance: CYANOCOBALAMIN
  2. LEVOTHYROXINE. [Concomitant]
     Active Substance: LEVOTHYROXINE
  3. ERGOCALCIFEROL. [Concomitant]
     Active Substance: ERGOCALCIFEROL
  4. LEVOCETIRIZINE [Concomitant]
     Active Substance: LEVOCETIRIZINE
  5. MODERNA COVID?19 VACCINE [Suspect]
     Active Substance: CX-024414
     Indication: COVID-19 IMMUNISATION
     Route: 065
  6. ONDANSETRON [Concomitant]
     Active Substance: ONDANSETRON
  7. HUMAN NORMAL IMMUNOGLOBULIN; LIQUID [Suspect]
     Active Substance: HUMAN IMMUNOGLOBULIN G
     Indication: MULTIPLE SCLEROSIS
     Dosage: 35 GRAM, Q3WEEKS
     Route: 042
     Dates: start: 20201120
  8. AMERGE [Concomitant]
     Active Substance: NARATRIPTAN HYDROCHLORIDE
  9. PANTOPRAZOLE [Concomitant]
     Active Substance: PANTOPRAZOLE
  10. SIMVASTATIN. [Concomitant]
     Active Substance: SIMVASTATIN
  11. AZELASTINE. [Concomitant]
     Active Substance: AZELASTINE HYDROCHLORIDE
  12. HYDROCODONE BITARTRATE AND ACETAMINOPHEN [Concomitant]
     Active Substance: ACETAMINOPHEN\HYDROCODONE BITARTRATE
  13. UBROGEPANT [Concomitant]
     Active Substance: UBROGEPANT
     Indication: MIGRAINE
  14. FOLIC ACID. [Concomitant]
     Active Substance: FOLIC ACID
  15. LIOTHYRONINE [Concomitant]
     Active Substance: LIOTHYRONINE
  16. RESTASIS [Concomitant]
     Active Substance: CYCLOSPORINE
  17. HYDROXYCHLOROQUINE [Concomitant]
     Active Substance: HYDROXYCHLOROQUINE
  18. WARFARIN [Concomitant]
     Active Substance: WARFARIN
  19. TOPIRAMATE. [Concomitant]
     Active Substance: TOPIRAMATE
  20. DIPHENHYDRAMINE. [Concomitant]
     Active Substance: DIPHENHYDRAMINE
  21. AUBAGIO [Concomitant]
     Active Substance: TERIFLUNOMIDE
  22. METOPROLOL. [Concomitant]
     Active Substance: METOPROLOL
  23. CYCLOBENZAPRIN [Concomitant]
     Active Substance: CYCLOBENZAPRINE

REACTIONS (4)
  - Haemorrhage [Unknown]
  - COVID-19 [Unknown]
  - Migraine [Unknown]
  - Feeling abnormal [Unknown]
